FAERS Safety Report 4950658-3 (Version None)
Quarter: 2006Q1

REPORT INFORMATION
  Report Type: 
  Country: None (occurrence: None)
  Receive Date: 20060322
  Receipt Date: 20051221
  Transmission Date: 20060701
  Serious: Yes (Other)
  Sender: FDA-Public Use
  Company Number: PHNU2005DE04260

PATIENT
  Age: 50 Year
  Sex: Female
  Weight: 94 kg

DRUGS (4)
  1. JODETTEN [Concomitant]
     Dosage: 1 DF, QD
     Route: 048
  2. EMSELEX EXTENDED RELEASE [Suspect]
     Indication: HYPERTONIC BLADDER
     Dates: start: 20050624, end: 20050711
  3. METOPROLOL [Concomitant]
     Dosage: 1 DF, QD
  4. VESDIL [Concomitant]
     Dosage: 0.5 DF, QD
     Route: 048

REACTIONS (2)
  - PRURITUS [None]
  - SKIN DISORDER [None]
